FAERS Safety Report 4527842-6 (Version None)
Quarter: 2004Q4

REPORT INFORMATION
  Report Type: 
  Country: None (occurrence: None)
  Receive Date: 20041123
  Receipt Date: 20040427
  Transmission Date: 20050328
  Serious: Yes (Other)
  Sender: FDA-Public Use
  Company Number: ATO-04-0434

PATIENT
  Age: 74 Year
  Sex: Male
  Weight: 100.7 kg

DRUGS (2)
  1. TRISENOX [Suspect]
     Indication: ACUTE PROMYELOCYTIC LEUKAEMIA
     Dosage: IVI
     Route: 042
     Dates: start: 20021115, end: 20021129
  2. ATRA [Suspect]
     Indication: ACUTE PROMYELOCYTIC LEUKAEMIA
     Dosage: (50 MG, 2X/DAY), ORAL
     Route: 048
     Dates: start: 20021001

REACTIONS (8)
  - BLOOD CREATININE INCREASED [None]
  - DIVERTICULITIS [None]
  - ELECTROCARDIOGRAM QT PROLONGED [None]
  - HYPOCALCAEMIA [None]
  - LEUKOPENIA [None]
  - PROCTITIS [None]
  - RECTAL HAEMORRHAGE [None]
  - SUPRAVENTRICULAR EXTRASYSTOLES [None]
